FAERS Safety Report 10249080 (Version 1)
Quarter: 2014Q2

REPORT INFORMATION
  Report Type: Spontaneous
  Country: DE (occurrence: DE)
  Receive Date: 20140620
  Receipt Date: 20140620
  Transmission Date: 20141212
  Serious: Yes (Other)
  Sender: FDA-Public Use
  Company Number: DE-AMGEN INC.-DEUSP2014046305

PATIENT
  Age: 65 Year
  Sex: Male

DRUGS (8)
  1. ENBREL [Suspect]
     Indication: RHEUMATOID ARTHRITIS
     Dosage: 50 MG, WEEKLY
     Route: 065
     Dates: start: 20090910
  2. ASPIRIN PROTECT [Concomitant]
     Dosage: UNK
  3. ATACAND [Concomitant]
     Dosage: UNK
  4. SIMVASTATIN [Concomitant]
     Dosage: UNK
  5. BISOPROLOL [Concomitant]
     Dosage: UNK
  6. FOLIC ACID [Concomitant]
     Dosage: UNK
  7. MTX                                /00113801/ [Concomitant]
     Dosage: 10 MG, UNK
     Route: 058
  8. INSULIN [Concomitant]
     Dosage: UNK

REACTIONS (1)
  - Spinal column stenosis [Not Recovered/Not Resolved]
